FAERS Safety Report 13665173 (Version 1)
Quarter: 2017Q2

REPORT INFORMATION
  Report Type: Spontaneous
  Country: KR (occurrence: KR)
  Receive Date: 20170619
  Receipt Date: 20170619
  Transmission Date: 20170830
  Serious: Yes (Hospitalization)
  Sender: FDA-Public Use
  Company Number: KR-009507513-1701KOR009351

PATIENT
  Age: 53 Year
  Sex: Female
  Weight: 79.7 kg

DRUGS (91)
  1. EMEND (FOSAPREPITANT DIMEGLUMINE) [Suspect]
     Active Substance: FOSAPREPITANT DIMEGLUMINE
     Dosage: 150 MG, ONCE
     Route: 042
     Dates: start: 20160517, end: 20160517
  2. DOXORUBICIN HYDROCHLORIDE. [Concomitant]
     Active Substance: DOXORUBICIN HYDROCHLORIDE
     Indication: BREAST CANCER
     Dosage: 84 MG, ONCE, CYCLE 3
     Route: 042
     Dates: start: 20160312, end: 20160312
  3. CISPLATIN. [Concomitant]
     Active Substance: CISPLATIN
     Dosage: 84 MG, ONCE, CYCLE 4
     Route: 042
     Dates: start: 20160405, end: 20160405
  4. DEXAMETHASONE SODIUM PHOSPHATE. [Concomitant]
     Active Substance: DEXAMETHASONE SODIUM PHOSPHATE
     Dosage: 10 MG, ONCE
     Route: 042
     Dates: start: 20160405, end: 20160405
  5. AROBEST [Concomitant]
     Indication: PAIN PROPHYLAXIS
     Dosage: 1 TABLET (20 MG), BID
     Route: 048
     Dates: start: 20160311
  6. NESP [Concomitant]
     Active Substance: DARBEPOETIN ALFA
     Dosage: 1 SYRINGE (120), ONCE A DAY
     Route: 058
     Dates: start: 20160620, end: 20160622
  7. HEPARIN SODIUM. [Concomitant]
     Active Substance: HEPARIN SODIUM
     Dosage: 1 ML, ONCE
     Route: 042
     Dates: start: 20160425, end: 20160425
  8. HARNAL [Concomitant]
     Active Substance: TAMSULOSIN HYDROCHLORIDE
     Indication: PROPHYLAXIS
     Dosage: 1 TABLET (0.2 MG), QD
     Route: 048
     Dates: start: 20160304
  9. PENIRAMIN [Concomitant]
     Dosage: 4 MG, ONCE
     Route: 058
     Dates: start: 20160527, end: 20160527
  10. DOXORUBICIN HYDROCHLORIDE. [Concomitant]
     Active Substance: DOXORUBICIN HYDROCHLORIDE
     Dosage: 84 MG, ONCE, CYCLE 4
     Route: 042
     Dates: start: 20160405, end: 20160405
  11. DOXORUBICIN HYDROCHLORIDE. [Concomitant]
     Active Substance: DOXORUBICIN HYDROCHLORIDE
     Dosage: 80 MG, ONCE, CYCLE 8
     Route: 042
     Dates: start: 20160702, end: 20160702
  12. CISPLATIN. [Concomitant]
     Active Substance: CISPLATIN
     Dosage: 84 MG, ONCE, CYCLE 8
     Route: 042
     Dates: start: 20160702, end: 20160702
  13. DEXAMETHASONE. [Concomitant]
     Active Substance: DEXAMETHASONE
     Dosage: 8 MG, ONCE
     Route: 048
     Dates: start: 20160518, end: 20160518
  14. DEXAMETHASONE SODIUM PHOSPHATE. [Concomitant]
     Active Substance: DEXAMETHASONE SODIUM PHOSPHATE
     Dosage: 10 MG, ONCE
     Route: 042
     Dates: start: 20160426, end: 20160426
  15. MAGNESIN (MAGNESIUM SULFATE) [Concomitant]
     Dosage: 3 AMP, ONCE
     Route: 042
     Dates: start: 20160518, end: 20160518
  16. HEPARIN SODIUM. [Concomitant]
     Active Substance: HEPARIN SODIUM
     Dosage: 1 ML, ONCE
     Route: 042
     Dates: start: 20160323, end: 20160323
  17. HEPARIN SODIUM. [Concomitant]
     Active Substance: HEPARIN SODIUM
     Dosage: 1 ML, ONCE
     Route: 042
     Dates: start: 20160607, end: 20160607
  18. SCD MAGNESIUM OXIDE [Concomitant]
     Indication: PROPHYLAXIS
     Dosage: UNK
  19. DEXAMETHASONE SODIUM PHOSPHATE. [Concomitant]
     Active Substance: DEXAMETHASONE SODIUM PHOSPHATE
     Indication: PROPHYLAXIS
     Dosage: 8 MG, ONCE A DAY
     Route: 042
     Dates: start: 20160313, end: 20160314
  20. DEXAMETHASONE SODIUM PHOSPHATE. [Concomitant]
     Active Substance: DEXAMETHASONE SODIUM PHOSPHATE
     Dosage: 8 MG, ONCE A DAY
     Route: 042
     Dates: start: 20160608, end: 20160609
  21. NASEA [Concomitant]
     Active Substance: RAMOSETRON HYDROCHLORIDE
     Dosage: 0.3 MG, ONCE
     Route: 042
     Dates: start: 20160702, end: 20160702
  22. ONDANSETRON [Concomitant]
     Active Substance: ONDANSETRON
     Indication: PROPHYLAXIS OF NAUSEA AND VOMITING
     Dosage: 4 TABLETS (32 MG), ONCE
     Route: 048
     Dates: start: 20160610, end: 20160610
  23. MAGNESIN (MAGNESIUM SULFATE) [Concomitant]
     Indication: PROPHYLAXIS
     Dosage: 1 AMP, ONCE
     Route: 042
     Dates: start: 20160314, end: 20160314
  24. NESP [Concomitant]
     Active Substance: DARBEPOETIN ALFA
     Dosage: 1 SYRINGE (120), ONCE
     Route: 058
     Dates: start: 20160425, end: 20160425
  25. HEPARIN SODIUM. [Concomitant]
     Active Substance: HEPARIN SODIUM
     Dosage: 1 ML, ONCE
     Route: 042
     Dates: start: 20160715, end: 20160715
  26. IRCODON [Concomitant]
     Dosage: 2 TABLETS (10 MG), ONCE A DAY
     Route: 048
     Dates: start: 20160401, end: 20160405
  27. AZEPTIN [Concomitant]
     Active Substance: AZELASTINE HYDROCHLORIDE
     Indication: PROPHYLAXIS
     Dosage: 1 TABLET (1 MG), BID
     Route: 048
     Dates: start: 20160531, end: 20160601
  28. BC MORPHINE SULFATE [Concomitant]
     Dosage: 1 AMP, ONCE A DAY; INFUSION
     Dates: start: 20160517, end: 20160520
  29. TYLENOL EXTENDED RELIEF CAPLETS [Concomitant]
     Active Substance: ACETAMINOPHEN
     Indication: PAIN
     Dosage: 2 TABLETS (1300 MG), THREE TIMES A DAY
     Route: 048
     Dates: start: 20160429, end: 20160502
  30. CISPLATIN. [Concomitant]
     Active Substance: CISPLATIN
     Dosage: 84 MG, ONCE, CYCLE 6
     Route: 042
     Dates: start: 20160517, end: 20160517
  31. DEXAMETHASONE. [Concomitant]
     Active Substance: DEXAMETHASONE
     Dosage: 8 MG, ONCE
     Route: 048
     Dates: start: 20160609, end: 20160609
  32. NASEA [Concomitant]
     Active Substance: RAMOSETRON HYDROCHLORIDE
     Dosage: 0.3 MG, ONCE
     Route: 042
     Dates: start: 20160426, end: 20160426
  33. MAXIPIME [Concomitant]
     Active Substance: CEFEPIME HYDROCHLORIDE
     Indication: PROPHYLAXIS
     Dosage: 2 G, THREE TIMES A DAY
     Dates: start: 20160621, end: 20160625
  34. BC MORPHINE SULFATE [Concomitant]
     Indication: CANCER PAIN
     Dosage: 1 AMP, ONCE A DAY; INFUSION
     Dates: start: 20160311, end: 20160314
  35. BC MORPHINE SULFATE [Concomitant]
     Dosage: 1 AMP, ONCE A DAY; INFUSION
     Dates: start: 20160426, end: 20160428
  36. GASLON [Concomitant]
     Active Substance: IRSOGLADINE MALEATE
     Indication: PROPHYLAXIS
     Dosage: 1 TABLET (4 MG), ONCE A DAY
     Route: 048
     Dates: start: 20160304, end: 20160312
  37. EMEND (FOSAPREPITANT DIMEGLUMINE) [Suspect]
     Active Substance: FOSAPREPITANT DIMEGLUMINE
     Indication: PROPHYLAXIS OF NAUSEA AND VOMITING
     Dosage: 150 MG, ONCE
     Route: 042
     Dates: start: 20160312, end: 20160312
  38. EMEND (FOSAPREPITANT DIMEGLUMINE) [Suspect]
     Active Substance: FOSAPREPITANT DIMEGLUMINE
     Dosage: 150 MG, ONCE
     Route: 042
     Dates: start: 20160426, end: 20160426
  39. CISPLATIN. [Concomitant]
     Active Substance: CISPLATIN
     Indication: BREAST CANCER
     Dosage: 84 MG, ONCE, CYCLE 3
     Route: 042
     Dates: start: 20160312, end: 20160312
  40. CISPLATIN. [Concomitant]
     Active Substance: CISPLATIN
     Dosage: 84 MG, ONCE, CYCLE 5
     Route: 042
     Dates: start: 20170426, end: 20170426
  41. DEXAMETHASONE SODIUM PHOSPHATE. [Concomitant]
     Active Substance: DEXAMETHASONE SODIUM PHOSPHATE
     Dosage: 8 MG, ONCE A DAY
     Route: 042
     Dates: start: 20160518, end: 20160520
  42. NASEA [Concomitant]
     Active Substance: RAMOSETRON HYDROCHLORIDE
     Dosage: 0.3 MG, ONCE
     Route: 042
     Dates: start: 20160607, end: 20160607
  43. ONDANSETRON HYDROCHLORIDE. [Concomitant]
     Active Substance: ONDANSETRON HYDROCHLORIDE
     Indication: PROPHYLAXIS OF NAUSEA AND VOMITING
     Dosage: 8 MG, ONCE
     Route: 042
     Dates: start: 20160609, end: 20160609
  44. MAGNESIN (MAGNESIUM SULFATE) [Concomitant]
     Dosage: 3 AMP, ONCE
     Route: 042
     Dates: start: 20160608, end: 20160608
  45. NESP [Concomitant]
     Active Substance: DARBEPOETIN ALFA
     Dosage: 1 SYRINGE (120), ONCE A DAY
     Route: 058
     Dates: start: 20160415, end: 20160418
  46. HEPARIN SODIUM. [Concomitant]
     Active Substance: HEPARIN SODIUM
     Indication: PROPHYLAXIS
     Dosage: 1 ML, ONCE
     Route: 042
     Dates: start: 20160311, end: 20160311
  47. HEPARIN SODIUM. [Concomitant]
     Active Substance: HEPARIN SODIUM
     Dosage: 1 ML, ONCE
     Route: 042
     Dates: start: 20160401, end: 20160401
  48. HEPARIN SODIUM. [Concomitant]
     Active Substance: HEPARIN SODIUM
     Dosage: 1 ML, ONCE
     Route: 042
     Dates: start: 20160516, end: 20160516
  49. TARGIN [Concomitant]
     Active Substance: NALOXONE HYDROCHLORIDE\OXYCODONE HYDROCHLORIDE
     Indication: PAIN
     Dosage: 1 TABLET (10/5 MG), TWICE A DAY
     Route: 048
     Dates: start: 20160311, end: 20160314
  50. SOLETON [Concomitant]
     Active Substance: ZALTOPROFEN
     Indication: PAIN
     Dosage: 1 TABLET (80 MG), TWICE A DAY
     Route: 048
     Dates: start: 20160304
  51. BC MORPHINE SULFATE [Concomitant]
     Dosage: 1 AMP, ONCE; INFUSION
     Dates: start: 20160401, end: 20160401
  52. STOGAR [Concomitant]
     Active Substance: LAFUTIDINE
     Indication: PROPHYLAXIS
     Dosage: 1 TABLET (10 MG), TWICE A DAY
     Route: 048
     Dates: start: 20160403, end: 20160701
  53. SCD MAGNESIUM OXIDE [Concomitant]
     Indication: PROPHYLAXIS
     Dosage: 1 TABLET (250 MG), THREE TIMES A DAY
     Dates: start: 20160406, end: 20160406
  54. SCD MAGNESIUM OXIDE [Concomitant]
     Dosage: 1 TABLET (250 MG), ONCE A DAY
     Route: 048
     Dates: start: 20160609, end: 20160620
  55. TYLENOL EXTENDED RELIEF CAPLETS [Concomitant]
     Active Substance: ACETAMINOPHEN
     Dosage: 2 TABLETS (1300 MG), THREE TIMES A DAY
     Route: 048
     Dates: start: 20160520, end: 20160523
  56. EMEND (FOSAPREPITANT DIMEGLUMINE) [Suspect]
     Active Substance: FOSAPREPITANT DIMEGLUMINE
     Dosage: 150 MG, ONCE
     Route: 042
     Dates: start: 20160405, end: 20160405
  57. EMEND (FOSAPREPITANT DIMEGLUMINE) [Suspect]
     Active Substance: FOSAPREPITANT DIMEGLUMINE
     Dosage: 150 MG, ONCE
     Route: 042
     Dates: start: 20160702, end: 20160702
  58. DEXAMETHASONE SODIUM PHOSPHATE. [Concomitant]
     Active Substance: DEXAMETHASONE SODIUM PHOSPHATE
     Dosage: 10 MG, ONCE
     Route: 042
     Dates: start: 20160517, end: 20160517
  59. DEXAMETHASONE SODIUM PHOSPHATE. [Concomitant]
     Active Substance: DEXAMETHASONE SODIUM PHOSPHATE
     Dosage: 8 MG, ONCE A DAY
     Route: 042
     Dates: start: 20160703, end: 20160705
  60. NESP [Concomitant]
     Active Substance: DARBEPOETIN ALFA
     Indication: PANCYTOPENIA
     Dosage: 1 SYRINGE (120), ONCE A DAY
     Route: 058
     Dates: start: 20160302, end: 20160304
  61. HEPARIN SODIUM. [Concomitant]
     Active Substance: HEPARIN SODIUM
     Dosage: 1 ML, ONCE
     Route: 042
     Dates: start: 20160531, end: 20160531
  62. TARGIN [Concomitant]
     Active Substance: NALOXONE HYDROCHLORIDE\OXYCODONE HYDROCHLORIDE
     Dosage: 1 TABLET (10/5 MG), TWICE A DAY
     Route: 048
     Dates: start: 20160402
  63. IRCODON [Concomitant]
     Indication: PAIN
     Dosage: 2 TABLETS (10 MG), ONCE A DAY
     Route: 048
     Dates: start: 20160311, end: 20160314
  64. DUROGESIC [Concomitant]
     Active Substance: FENTANYL
     Indication: CANCER PAIN
     Dosage: 25 MCG/H 10.5 CM2, 1 PK, ONCE A DAY
     Route: 003
     Dates: start: 20160311, end: 20160520
  65. PENIRAMIN [Concomitant]
     Indication: PROPHYLAXIS
     Dosage: 4 MG, ONCE
     Route: 058
     Dates: start: 20160426, end: 20160426
  66. DENOGAN [Concomitant]
     Active Substance: PROPACETAMOL HYDROCHLORIDE
     Indication: CANCER PAIN
     Dosage: 2 G, ONCE A DAY
     Route: 042
     Dates: start: 20160621, end: 20160622
  67. DOXORUBICIN HYDROCHLORIDE. [Concomitant]
     Active Substance: DOXORUBICIN HYDROCHLORIDE
     Dosage: 84 MG, ONCE, CYCLE 5
     Route: 042
     Dates: start: 20160426, end: 20160426
  68. DOXORUBICIN HYDROCHLORIDE. [Concomitant]
     Active Substance: DOXORUBICIN HYDROCHLORIDE
     Dosage: 84 MG, ONCE, CYCLE 6
     Route: 042
     Dates: start: 20160517, end: 20160517
  69. DEXAMETHASONE SODIUM PHOSPHATE. [Concomitant]
     Active Substance: DEXAMETHASONE SODIUM PHOSPHATE
     Indication: PREMEDICATION
     Dosage: 10 MG, ONCE
     Route: 042
     Dates: start: 20160312, end: 20160312
  70. DEXAMETHASONE SODIUM PHOSPHATE. [Concomitant]
     Active Substance: DEXAMETHASONE SODIUM PHOSPHATE
     Dosage: 8 MG, ONCE
     Route: 042
     Dates: start: 20160406, end: 20160406
  71. DEXAMETHASONE SODIUM PHOSPHATE. [Concomitant]
     Active Substance: DEXAMETHASONE SODIUM PHOSPHATE
     Dosage: 10 MG, ONCE A DAY
     Route: 042
     Dates: start: 20160607, end: 20160607
  72. NASEA [Concomitant]
     Active Substance: RAMOSETRON HYDROCHLORIDE
     Dosage: 0.3 MG, ONCE
     Route: 042
     Dates: start: 20160405, end: 20160405
  73. NASEA [Concomitant]
     Active Substance: RAMOSETRON HYDROCHLORIDE
     Dosage: 0.3 MG, ONCE
     Route: 042
     Dates: start: 20160517, end: 20160517
  74. CYMBALTA [Concomitant]
     Active Substance: DULOXETINE HYDROCHLORIDE
     Indication: PROPHYLAXIS
     Dosage: 1 CAPSULE (30 MG), ONCE A DAY
     Route: 048
     Dates: start: 20160311
  75. IRCODON [Concomitant]
     Dosage: 1 TABLET (5MG), FOUR TIMES A DAY
     Route: 048
     Dates: start: 20160425
  76. MAXIPIME [Concomitant]
     Active Substance: CEFEPIME HYDROCHLORIDE
     Dosage: 2 G, THREE TIMES A DAY
     Dates: start: 20160715
  77. BC MORPHINE SULFATE [Concomitant]
     Dosage: 1 AMP, ONCE A DAY; INFUSION
     Dates: start: 20160403, end: 20160405
  78. EMEND (FOSAPREPITANT DIMEGLUMINE) [Suspect]
     Active Substance: FOSAPREPITANT DIMEGLUMINE
     Dosage: 150 MG, ONCE
     Route: 042
     Dates: start: 20160607, end: 20160607
  79. DOXORUBICIN HYDROCHLORIDE. [Concomitant]
     Active Substance: DOXORUBICIN HYDROCHLORIDE
     Dosage: 80 MG, ONCE, CYCLE 7
     Route: 042
     Dates: start: 20160607, end: 20160607
  80. CISPLATIN. [Concomitant]
     Active Substance: CISPLATIN
     Dosage: 84 MG, ONCE, CYCLE 7
     Route: 042
     Dates: start: 20160607, end: 20160607
  81. DEXAMETHASONE. [Concomitant]
     Active Substance: DEXAMETHASONE
     Indication: PROPHYLAXIS OF NAUSEA AND VOMITING
     Dosage: 4 MG, TWICE A DAY
     Route: 048
     Dates: start: 20160407, end: 20160407
  82. DEXAMETHASONE SODIUM PHOSPHATE. [Concomitant]
     Active Substance: DEXAMETHASONE SODIUM PHOSPHATE
     Dosage: 8 MG, ONCE A DAY
     Route: 042
     Dates: start: 20160427, end: 20160429
  83. DEXAMETHASONE SODIUM PHOSPHATE. [Concomitant]
     Active Substance: DEXAMETHASONE SODIUM PHOSPHATE
     Dosage: 10 MG, ONCE
     Route: 042
     Dates: start: 20160702, end: 20160702
  84. NASEA [Concomitant]
     Active Substance: RAMOSETRON HYDROCHLORIDE
     Indication: PREMEDICATION
     Dosage: 0.3 MG, ONCE
     Route: 042
     Dates: start: 20160312, end: 20160312
  85. NEXIUM [Concomitant]
     Active Substance: ESOMEPRAZOLE MAGNESIUM
     Indication: PROPHYLAXIS
     Dosage: 1 TABLET  (20 MG), ONCE A DAY
     Route: 048
     Dates: start: 20160607
  86. NESP [Concomitant]
     Active Substance: DARBEPOETIN ALFA
     Dosage: 1 SYRINGE (120), ONCE A DAY
     Route: 058
     Dates: start: 20160606, end: 20160609
  87. BESZYME [Concomitant]
     Indication: PROPHYLAXIS AGAINST GASTROINTESTINAL ULCER
     Dosage: 1 TABLET, THREE TIMES A DAY
     Route: 048
     Dates: start: 20160429, end: 20160527
  88. FUSIMED [Concomitant]
     Indication: PROPHYLAXIS
     Dosage: 1 FTU, ONCE A DAY
     Route: 003
     Dates: start: 20160321, end: 201603
  89. PENIRAMIN [Concomitant]
     Dosage: 4 MG, ONCE
     Route: 058
     Dates: start: 20160531, end: 20160531
  90. NEUTROGIN [Concomitant]
     Active Substance: LENOGRASTIM
     Indication: PROPHYLAXIS
     Dosage: 250 MICROGRAM, ONCE
     Dates: start: 20160509, end: 20160509
  91. URSA TABLETS [Concomitant]
     Indication: PROPHYLAXIS
     Dosage: 1 TABLET (100 MG), ONCE A DAY
     Route: 048
     Dates: start: 20160429, end: 20160507

REACTIONS (2)
  - Pyrexia [Recovered/Resolved]
  - Abdominal discomfort [Recovered/Resolved]

NARRATIVE: CASE EVENT DATE: 20160601
